FAERS Safety Report 12836080 (Version 3)
Quarter: 2016Q4

REPORT INFORMATION
  Report Type: Spontaneous
  Country: US (occurrence: US)
  Receive Date: 20161011
  Receipt Date: 20161114
  Transmission Date: 20170207
  Serious: Yes (Other)
  Sender: FDA-Public Use
  Company Number: US-PFIZER INC-2016472188

PATIENT
  Age: 69 Year
  Sex: Female

DRUGS (11)
  1. LIPITOR [Suspect]
     Active Substance: ATORVASTATIN CALCIUM
     Dosage: 10 MG, 1X/DAY
     Route: 048
     Dates: start: 20160511
  2. ALBUTEROL SULFATE. [Concomitant]
     Active Substance: ALBUTEROL SULFATE
     Dosage: 3 ML, AS NEEDED
     Route: 055
     Dates: start: 20151116
  3. VITAMIN D3 [Concomitant]
     Active Substance: CHOLECALCIFEROL
     Dosage: 1000 IU, UNK
     Dates: start: 20150422
  4. CELEBREX [Suspect]
     Active Substance: CELECOXIB
     Dosage: 200 MG, 1X/DAY
     Route: 048
     Dates: start: 20151208
  5. LEVOTHYROXINE. [Concomitant]
     Active Substance: LEVOTHYROXINE
     Dosage: 88 UG, 1X/DAY
     Route: 048
     Dates: start: 20160706
  6. XANAX [Suspect]
     Active Substance: ALPRAZOLAM
     Dosage: 0.25 MG, AS NEEDED (1 TIME PER DAY PRN AT BED TIME)
     Route: 048
     Dates: start: 20160920
  7. CALCIUM 600 [Concomitant]
     Dosage: UNK (600 MG/1500 MG)
     Dates: start: 20150422
  8. QVAR [Concomitant]
     Active Substance: BECLOMETHASONE DIPROPIONATE
     Dosage: UNK UNK, 2X/DAY (80 MCG/ACTUATION AEROSOL, INHALE 2 PUFF BY INHALATION ROUTE)
     Route: 055
     Dates: start: 20150922
  9. TYLENOL WITH CODEINE [Concomitant]
     Active Substance: ACETAMINOPHEN\CODEINE PHOSPHATE
     Dosage: 1 DF, AS NEEDED EVERY 12 HOURS
     Route: 048
     Dates: start: 20160511
  10. PRILOSEC [Concomitant]
     Active Substance: OMEPRAZOLE MAGNESIUM
     Dosage: 20 MG, 1X/DAY (BEFORE A MEAL)
     Route: 048
     Dates: start: 20160920
  11. DUONEB [Concomitant]
     Active Substance: ALBUTEROL SULFATE\IPRATROPIUM BROMIDE
     Dosage: 1 DF, 3X/DAY
     Route: 048
     Dates: start: 20150922

REACTIONS (2)
  - Headache [Unknown]
  - Myocardial infarction [Unknown]
